FAERS Safety Report 7888838-X (Version None)
Quarter: 2011Q4

REPORT INFORMATION
  Report Type: 
  Country: None (occurrence: None)
  Receive Date: 20111031
  Receipt Date: 20111025
  Transmission Date: 20120403
  Serious: Yes (Death)
  Sender: FDA-Public Use
  Company Number: 2011SP033373

PATIENT
  Age: 63 Year
  Sex: Male
  Weight: 55 kg

DRUGS (16)
  1. FAMOTIDINE [Concomitant]
  2. JUSO [Concomitant]
  3. LAC-B [Concomitant]
  4. REMERON [Suspect]
     Indication: DELIRIUM
     Dosage: 7.5 MG;QD;PO
     Route: 048
     Dates: start: 20110602, end: 20110622
  5. REMERON [Suspect]
     Indication: DEPRESSIVE SYMPTOM
     Dosage: 7.5 MG;QD;PO
     Route: 048
     Dates: start: 20110602, end: 20110622
  6. NAPROXEN SODIUM [Suspect]
     Indication: PYREXIA
     Dosage: 100 MG;TID;PO
     Route: 048
     Dates: start: 20110616, end: 20110629
  7. HUSCODE [Concomitant]
  8. LIVACT [Concomitant]
  9. MUCODYNE [Concomitant]
  10. ASTOMIN [Concomitant]
  11. DICLOFENAC SODIUM [Suspect]
     Indication: PYREXIA
     Dosage: 25 MG;QD;RTL ; 25 MG;QD;RTL ; 25 MG;QD;RTL
     Dates: start: 20110620, end: 20110623
  12. DICLOFENAC SODIUM [Suspect]
     Indication: PYREXIA
     Dosage: 25 MG;QD;RTL ; 25 MG;QD;RTL ; 25 MG;QD;RTL
     Dates: start: 20110625, end: 20110625
  13. DICLOFENAC SODIUM [Suspect]
     Indication: PYREXIA
     Dosage: 25 MG;QD;RTL ; 25 MG;QD;RTL ; 25 MG;QD;RTL
     Dates: start: 20110627, end: 20110627
  14. ARGAMATE [Concomitant]
  15. LACTULOSE [Concomitant]
  16. LEVOFLOXACIN [Concomitant]

REACTIONS (10)
  - HEPATIC FAILURE [None]
  - SEPTIC SHOCK [None]
  - MOUTH HAEMORRHAGE [None]
  - VENTRICULAR TACHYCARDIA [None]
  - RESPIRATORY FAILURE [None]
  - AGRANULOCYTOSIS [None]
  - NAUSEA [None]
  - PYREXIA [None]
  - SOMNOLENCE [None]
  - MULTI-ORGAN FAILURE [None]
